FAERS Safety Report 12769740 (Version 2)
Quarter: 2016Q4

REPORT INFORMATION
  Report Type: Spontaneous
  Country: US (occurrence: US)
  Receive Date: 20160922
  Receipt Date: 20161109
  Transmission Date: 20170207
  Serious: No
  Sender: FDA-Public Use
  Company Number: PHEH2016US023977

PATIENT
  Sex: Female

DRUGS (2)
  1. VIVELLE-DOT [Suspect]
     Active Substance: ESTRADIOL
     Indication: PRODUCT USED FOR UNKNOWN INDICATION
     Dosage: 0.075 MG, BIW
     Route: 062
     Dates: start: 20160917
  2. ESTRADIOL. [Suspect]
     Active Substance: ESTRADIOL
     Indication: PRODUCT USED FOR UNKNOWN INDICATION
     Route: 062

REACTIONS (4)
  - Sleep disorder [Unknown]
  - Hot flush [Unknown]
  - Drug ineffective [Unknown]
  - Product adhesion issue [Unknown]
